FAERS Safety Report 8187272-5 (Version None)
Quarter: 2012Q1

REPORT INFORMATION
  Report Type: 
  Country: None (occurrence: None)
  Receive Date: 20120306
  Receipt Date: 20120228
  Transmission Date: 20120608
  Serious: Yes (Hospitalization)
  Sender: FDA-Public Use
  Company Number: US-BAYER-2011-099624

PATIENT
  Age: 48 Year
  Sex: Female
  Weight: 106.12 kg

DRUGS (3)
  1. CLONAZEPAM [Concomitant]
     Indication: RESTLESS LEGS SYNDROME
     Dosage: UNK
     Dates: start: 20050101
  2. VERAPAMIL [Concomitant]
     Indication: VERTIGO
     Dosage: UNK
     Dates: start: 20080101, end: 20110101
  3. YAZ [Suspect]
     Dosage: UNK UNK, QD
     Route: 048
     Dates: start: 20080101, end: 20091201

REACTIONS (5)
  - THROMBOSIS [None]
  - ANXIETY [None]
  - PAIN [None]
  - PULMONARY EMBOLISM [None]
  - DEEP VEIN THROMBOSIS [None]
